FAERS Safety Report 19181710 (Version 2)
Quarter: 2021Q2

REPORT INFORMATION
  Report Type: Report from Study
  Country: TW (occurrence: TW)
  Receive Date: 20210426
  Receipt Date: 20210512
  Transmission Date: 20210717
  Serious: Yes (Hospitalization)
  Sender: FDA-Public Use
  Company Number: TW-JNJFOC-20210431130

PATIENT
  Age: 64 Year
  Sex: Female
  Weight: 51 kg

DRUGS (16)
  1. HIGH XYLMOL [Concomitant]
     Indication: HAEMORRHOIDS
     Dates: start: 20201218, end: 20210419
  2. DEXAMETHASONE. [Concomitant]
     Active Substance: DEXAMETHASONE
     Indication: STOMATITIS
     Route: 048
     Dates: start: 20210129
  3. UREA. [Concomitant]
     Active Substance: UREA
     Indication: ONYCHOLYSIS
     Dosage: 40 %
     Dates: start: 20210409
  4. FEXOFENADINE [Concomitant]
     Active Substance: FEXOFENADINE HYDROCHLORIDE
     Indication: ONYCHOLYSIS
     Dates: start: 20210409
  5. NYSTATIN. [Concomitant]
     Active Substance: NYSTATIN
     Indication: CANDIDA INFECTION
     Dates: start: 20210409, end: 20210413
  6. BETAMETHASONE. [Concomitant]
     Active Substance: BETAMETHASONE
     Indication: ONYCHOLYSIS
     Dates: start: 20210409
  7. SIMETHICONE (DIMETHICONE) [Concomitant]
     Active Substance: DIMETHICONE
     Indication: PROPHYLAXIS
     Dates: start: 20210419
  8. UREA. [Concomitant]
     Active Substance: UREA
     Indication: PARONYCHIA
     Dosage: 10%
     Dates: start: 20210319
  9. GENTAMYCIN [GENTAMICIN] [Concomitant]
     Active Substance: GENTAMICIN
     Indication: ONYCHOLYSIS
     Dates: start: 20210409
  10. ALPRAZOLAM. [Concomitant]
     Active Substance: ALPRAZOLAM
     Indication: SLEEP DISORDER THERAPY
     Dates: start: 20201218
  11. HYDROXYPROPYL METHYLCELLULOSE [Concomitant]
     Active Substance: HYPROMELLOSES
     Indication: DRY EYE
     Dates: start: 20201222
  12. TRIAMCINOLONE [Concomitant]
     Active Substance: TRIAMCINOLONE
     Indication: STOMATITIS
     Dates: start: 20210409
  13. TYROTHRICIN [Concomitant]
     Active Substance: TYROTHRICIN
     Indication: ONYCHOLYSIS
     Dates: start: 20210409
  14. TETRACYCLINE [Concomitant]
     Active Substance: TETRACYCLINE
     Indication: ONYCHOLYSIS
     Dates: start: 20210409
  15. NEOMYCIN. [Concomitant]
     Active Substance: NEOMYCIN
     Indication: ONYCHOLYSIS
     Dates: start: 20210409
  16. ERDAFITINIB. [Suspect]
     Active Substance: ERDAFITINIB
     Indication: CHOLANGIOCARCINOMA
     Dosage: MEDICATION KIT NUMBER 049?5360
     Route: 048
     Dates: start: 20201224

REACTIONS (2)
  - Anal erosion [Recovered/Resolved]
  - Haemorrhoids [Recovered/Resolved]

NARRATIVE: CASE EVENT DATE: 20210414
